FAERS Safety Report 9210834 (Version 1)
Quarter: 2013Q2

REPORT INFORMATION
  Report Type: Spontaneous
  Country: FR (occurrence: FR)
  Receive Date: 20130404
  Receipt Date: 20130404
  Transmission Date: 20140414
  Serious: Yes (Hospitalization)
  Sender: FDA-Public Use
  Company Number: PHHY2013FR031401

PATIENT
  Age: 58 Year
  Sex: Male

DRUGS (2)
  1. DOCETAXEL [Suspect]
     Dosage: 75 MG/M2, UNK
     Route: 042
     Dates: start: 20120122, end: 20120217
  2. TAXOTERE [Suspect]
     Dosage: 75 MG/M2, UNK
     Route: 042
     Dates: start: 20120103, end: 20120103

REACTIONS (3)
  - Myofascial pain syndrome [Recovered/Resolved]
  - Arthralgia [Recovered/Resolved]
  - Joint swelling [Recovered/Resolved]
